FAERS Safety Report 16454498 (Version 1)
Quarter: 2019Q2

REPORT INFORMATION
  Report Type: Spontaneous
  Country: US (occurrence: US)
  Receive Date: 20190619
  Receipt Date: 20190619
  Transmission Date: 20190711
  Serious: No
  Sender: FDA-Public Use
  Company Number: US-ROCHE-2237298

PATIENT
  Sex: Female

DRUGS (8)
  1. FOLIC ACID. [Concomitant]
     Active Substance: FOLIC ACID
     Route: 065
  2. ESOMEPRAZOLE. [Concomitant]
     Active Substance: ESOMEPRAZOLE MAGNESIUM
  3. ACTEMRA [Suspect]
     Active Substance: TOCILIZUMAB
     Indication: RHEUMATOID ARTHRITIS
     Dosage: 0.9 ML SD PFS
     Route: 058
  4. ZOCOR [Concomitant]
     Active Substance: SIMVASTATIN
  5. IBUPROFEN. [Concomitant]
     Active Substance: IBUPROFEN
  6. PREDNISONE. [Concomitant]
     Active Substance: PREDNISONE
     Route: 065
  7. PLAQUENIL [Concomitant]
     Active Substance: HYDROXYCHLOROQUINE SULFATE
  8. FLUVIRIN [INFLUENZA VACCINE INACT SAG 3V] [Concomitant]
     Dosage: 2015-16
     Route: 065

REACTIONS (1)
  - Bronchitis [Unknown]
